FAERS Safety Report 4576216-0 (Version None)
Quarter: 2005Q1

REPORT INFORMATION
  Report Type: 
  Country: None (occurrence: None)
  Receive Date: 20050119
  Receipt Date: 20041022
  Transmission Date: 20050727
  Serious: Yes (Hospitalization)
  Sender: FDA-Public Use
  Company Number: A03200403558

PATIENT
  Age: 79 Year
  Sex: Female
  Weight: 89.8122 kg

DRUGS (2)
  1. PLAVIX [Suspect]
     Indication: STENT PLACEMENT
     Dosage: 75 MG QD - ORAL
     Route: 048
     Dates: start: 20040701
  2. ALENDRONATE SODIUM [Concomitant]

REACTIONS (3)
  - ANGINA PECTORIS [None]
  - DRUG INEFFECTIVE [None]
  - RASH PUSTULAR [None]
